FAERS Safety Report 4787692-2 (Version None)
Quarter: 2005Q3

REPORT INFORMATION
  Report Type: 
  Country: None (occurrence: None)
  Receive Date: 20050914
  Receipt Date: 20050125
  Transmission Date: 20060218
  Serious: Yes (Hospitalization, Disabling)
  Sender: FDA-Public Use
  Company Number: 163-20785-05010469

PATIENT
  Age: 63 Year
  Sex: Male

DRUGS (3)
  1. THALOMID [Suspect]
     Indication: GLIOMA
     Dosage: 100 MG, DAILY, ORAL
     Route: 048
     Dates: start: 20041201
  2. TEMOZOLOMIDE (TEMOZOLOMIDE) [Suspect]
     Indication: GLIOMA
  3. TAMOXIFEN CITRATE [Suspect]
     Indication: GLIOMA

REACTIONS (2)
  - ARTERIAL THROMBOSIS [None]
  - GANGRENE [None]
